FAERS Safety Report 9132071 (Version 1)
Quarter: 2013Q1

REPORT INFORMATION
  Report Type: Spontaneous
  Country: FR (occurrence: FR)
  Receive Date: 20130208
  Receipt Date: 20130208
  Transmission Date: 20140127
  Serious: Yes (Hospitalization)
  Sender: FDA-Public Use
  Company Number: FR-ASTRAZENECA-2013SE07083

PATIENT
  Age: 22467 Day
  Sex: Female

DRUGS (7)
  1. SYMBICORT TURBUHALER [Suspect]
     Indication: RESPIRATORY FAILURE
     Dosage: 400/12 MICROGRAM TWICE DAILY
     Route: 055
     Dates: start: 20121113, end: 20121123
  2. SALAZOPYRINE [Concomitant]
     Route: 048
  3. CELEBREX [Concomitant]
     Route: 048
  4. BRICANYL [Concomitant]
     Route: 048
  5. ATROVENT [Concomitant]
     Route: 048
  6. LOXEN [Concomitant]
     Route: 048
  7. MEDIATENSYL [Concomitant]
     Route: 048

REACTIONS (3)
  - Acute respiratory distress syndrome [Recovered/Resolved]
  - Pyrexia [Unknown]
  - Sputum purulent [Unknown]
